FAERS Safety Report 8849288 (Version 1)
Quarter: 2012Q4

REPORT INFORMATION
  Report Type: Spontaneous
  Country: US (occurrence: None)
  Receive Date: 20121018
  Receipt Date: 20121018
  Transmission Date: 20130627
  Serious: Yes (Life-Threatening, Hospitalization)
  Sender: FDA-Public Use
  Company Number: None

PATIENT
  Sex: Female
  Weight: 94.35 kg

DRUGS (7)
  1. RELPAX [Suspect]
     Indication: MIGRAINE
     Dates: start: 2007, end: 201205
  2. LOESTRIN [Suspect]
     Indication: MIGRAINE
     Dates: start: 2004, end: 201205
  3. MIRAPEX [Concomitant]
  4. WELLBUTRIN [Concomitant]
  5. TOPOMAX [Concomitant]
  6. NUVIGIL [Concomitant]
  7. ZOFRAN [Concomitant]

REACTIONS (2)
  - Cerebrovascular accident [None]
  - Deafness unilateral [None]
